FAERS Safety Report 11183861 (Version 1)
Quarter: 2015Q2

REPORT INFORMATION
  Report Type: Spontaneous
  Country: US (occurrence: None)
  Receive Date: 20150611
  Receipt Date: 20150611
  Transmission Date: 20150821
  Serious: Yes (Other)
  Sender: FDA-Public Use
  Company Number: None

PATIENT
  Age: 67 Year
  Sex: Female

DRUGS (11)
  1. BROMPHENIRCMINE-PHENYLEPHRINE (DIMETAPP COLD-ALLERGY, PE,) [Concomitant]
  2. LIPITOR [Concomitant]
     Active Substance: ATORVASTATIN CALCIUM
  3. ASPIRIN. [Concomitant]
     Active Substance: ASPIRIN
  4. CODEIN [Concomitant]
     Active Substance: CODEINE
  5. CALCIUM CARBONATE-VIT D3 (CALCIUM 600 + 0) [Concomitant]
  6. E-GUAIFENESLN (CHERATUSS1N AC) [Concomitant]
  7. CLINDAMYCLN HCL, (CLEOCIN) [Concomitant]
  8. TRAZODONE (DESYREL) [Concomitant]
  9. REVLIMID [Suspect]
     Active Substance: LENALIDOMIDE
     Indication: PLASMA CELL MYELOMA
     Dosage: 5 MG, DAILY X 21D/2BD
     Route: 048
     Dates: start: 201401, end: 201505
  10. MORPHINE (MS CONTIN/ORAMORPH SR) [Concomitant]
  11. HYDROCORTISONE;(HYTONE) [Concomitant]

REACTIONS (2)
  - Disease recurrence [None]
  - Neutropenia [None]

NARRATIVE: CASE EVENT DATE: 20150511
